FAERS Safety Report 6934509-3 (Version None)
Quarter: 2010Q3

REPORT INFORMATION
  Report Type: 
  Country: None (occurrence: None)
  Receive Date: 20100820
  Receipt Date: 20100810
  Transmission Date: 20110219
  Serious: Yes (Other)
  Sender: FDA-Public Use
  Company Number: MX-WATSON-2010-10840

PATIENT
  Age: 28 Year
  Sex: Female

DRUGS (1)
  1. TACROLIMUS (WATSON LABORATORIES) [Suspect]
     Indication: PROPHYLAXIS AGAINST TRANSPLANT REJECTION
     Dosage: UNK

REACTIONS (1)
  - FIBROADENOMA OF BREAST [None]
